FAERS Safety Report 9221687 (Version 1)
Quarter: 2013Q1

REPORT INFORMATION
  Report Type: Spontaneous
  Country: US (occurrence: None)
  Receive Date: 20120907
  Receipt Date: 20120907
  Transmission Date: 20140127
  Serious: Yes (Death, Hospitalization)
  Sender: FDA-Public Use
  Company Number: TH-2012-00228

PATIENT
  Age: 43 Year
  Sex: Male

DRUGS (1)
  1. EGRIFTA [Suspect]
     Indication: PRODUCT USED FOR UNKNOWN INDICATION
     Dates: start: 20110915

REACTIONS (5)
  - Cardio-respiratory arrest [None]
  - Arrhythmia [None]
  - Pneumonia [None]
  - Pneumonia staphylococcal [None]
  - Thrombosis in device [None]
